FAERS Safety Report 15594056 (Version 2)
Quarter: 2019Q1

REPORT INFORMATION
  Report Type: Spontaneous
  Country: US (occurrence: US)
  Receive Date: 20181107
  Receipt Date: 20190116
  Transmission Date: 20190417
  Serious: No
  Sender: FDA-Public Use
  Company Number: US-BAUSCH-BL-2018-029596

PATIENT
  Age: 39 Year
  Sex: Female

DRUGS (2)
  1. ERYTHROMYCIN-BENZOYL PEROXIDE TOPICAL GEL [Suspect]
     Active Substance: BENZOYL PEROXIDE\ERYTHROMYCIN
     Dosage: ONCE TO TWICE DAILY
     Route: 061
     Dates: start: 2018, end: 20181015
  2. ERYTHROMYCIN-BENZOYL PEROXIDE TOPICAL GEL [Suspect]
     Active Substance: BENZOYL PEROXIDE\ERYTHROMYCIN
     Indication: ACNE
     Dosage: ONCE TO TWICE DAILY
     Route: 061
     Dates: start: 2018, end: 2018

REACTIONS (3)
  - Drug ineffective [Recovered/Resolved]
  - Therapy cessation [Not Recovered/Not Resolved]
  - Product physical issue [Recovered/Resolved]

NARRATIVE: CASE EVENT DATE: 2018
